FAERS Safety Report 8618652-9 (Version None)
Quarter: 2012Q3

REPORT INFORMATION
  Report Type: 
  Country: None (occurrence: None)
  Receive Date: 20120824
  Receipt Date: 20090523
  Transmission Date: 20120928
  Serious: No
  Sender: FDA-Public Use
  Company Number: US-PFIZER INC-09-AUR-10289

PATIENT
  Age: 97 Year
  Sex: Female

DRUGS (1)
  1. CEFPODOXIME PROXETIL [Suspect]
     Indication: URINARY TRACT INFECTION
     Dosage: UNK

REACTIONS (3)
  - ABNORMAL BEHAVIOUR [None]
  - CONFUSIONAL STATE [None]
  - ANGER [None]
